FAERS Safety Report 24584141 (Version 1)
Quarter: 2024Q4

REPORT INFORMATION
  Report Type: Report from Study
  Country: BR (occurrence: BR)
  Receive Date: 20241106
  Receipt Date: 20241106
  Transmission Date: 20250115
  Serious: Yes (Other)
  Sender: JOHNSON AND JOHNSON
  Company Number: BR-JNJFOC-20241086501

PATIENT
  Age: 32 Year
  Sex: Female
  Weight: 63 kg

DRUGS (2)
  1. GOLIMUMAB [Suspect]
     Active Substance: GOLIMUMAB
     Indication: Product used for unknown indication
     Route: 058
     Dates: start: 20240919
  2. GOLIMUMAB [Suspect]
     Active Substance: GOLIMUMAB

REACTIONS (9)
  - Visual impairment [Unknown]
  - Synovial disorder [Unknown]
  - Musculoskeletal stiffness [Unknown]
  - Oedema [Unknown]
  - Mobility decreased [Unknown]
  - Pain in extremity [Unknown]
  - Nausea [Unknown]
  - Vertigo [Unknown]
  - Dizziness [Unknown]
